FAERS Safety Report 24235072 (Version 1)
Quarter: 2024Q3

REPORT INFORMATION
  Report Type: Spontaneous
  Country: JP (occurrence: JP)
  Receive Date: 20240821
  Receipt Date: 20240821
  Transmission Date: 20241016
  Serious: Yes (Hospitalization)
  Sender: EAGLE
  Company Number: A202400307-001

PATIENT
  Age: 81 Year
  Sex: Female

DRUGS (4)
  1. BENDAMUSTINE HYDROCHLORIDE [Suspect]
     Active Substance: BENDAMUSTINE HYDROCHLORIDE
     Indication: Follicular lymphoma
     Dosage: UNK, BR THERAPY
     Route: 042
  2. RITUXIMAB [Suspect]
     Active Substance: RITUXIMAB
     Indication: Follicular lymphoma
     Dosage: UNK, BR THERAPY
     Route: 042
  3. COVID-19 VACCINE NOS [Suspect]
     Active Substance: COVID-19 VACCINE
     Indication: Immunisation
     Dosage: UNK
     Route: 065
  4. CILGAVIMAB\TIXAGEVIMAB [Suspect]
     Active Substance: CILGAVIMAB\TIXAGEVIMAB
     Indication: Product used for unknown indication
     Dosage: UNK
     Route: 065

REACTIONS (2)
  - Post-acute COVID-19 syndrome [Recovered/Resolved]
  - Hyperglycaemic hyperosmolar nonketotic syndrome [Recovered/Resolved]
